FAERS Safety Report 9152609 (Version 1)
Quarter: 2013Q1

REPORT INFORMATION
  Report Type: Spontaneous
  Country: US (occurrence: US)
  Receive Date: 20130308
  Receipt Date: 20130308
  Transmission Date: 20140127
  Serious: Yes (Hospitalization)
  Sender: FDA-Public Use
  Company Number: US-B.I. PHARMACEUTICALS,INC./RIDGEFIELD-2013-BI-05871BP

PATIENT
  Sex: Male

DRUGS (3)
  1. CATAPRES [Suspect]
     Indication: WITHDRAWAL SYNDROME
     Dates: start: 20130211
  2. VIVITROL [Suspect]
     Indication: DRUG DEPENDENCE
     Route: 030
     Dates: start: 20130211
  3. SUBOXONE [Concomitant]
     Dates: end: 20130209

REACTIONS (2)
  - Heart rate decreased [Unknown]
  - Withdrawal syndrome [Unknown]
